FAERS Safety Report 4287753-0 (Version None)
Quarter: 2004Q1

REPORT INFORMATION
  Report Type: 
  Country: None (occurrence: None)
  Receive Date: 20040209
  Receipt Date: 20030915
  Transmission Date: 20041129
  Serious: No
  Sender: FDA-Public Use
  Company Number: US-GLAXOSMITHKLINE-A0425910A

PATIENT
  Age: 48 Year
  Sex: Female
  Weight: 83.2 kg

DRUGS (7)
  1. PAXIL [Suspect]
     Indication: DEPRESSION
     Dosage: 12.5MG PER DAY
     Route: 048
     Dates: start: 20030809, end: 20030915
  2. BECONASE AQ [Concomitant]
  3. POTASSIUM CHLORIDE SOLUTION [Concomitant]
     Route: 048
  4. COZAAR [Concomitant]
     Dosage: 25MG PER DAY
     Route: 048
  5. KLONOPIN [Concomitant]
  6. PEPCID [Concomitant]
     Route: 048
  7. PROVENTIL [Concomitant]

REACTIONS (5)
  - HYPERHIDROSIS [None]
  - PRURITUS [None]
  - SWELLING FACE [None]
  - SWOLLEN TONGUE [None]
  - URTICARIA [None]
